FAERS Safety Report 11083697 (Version 4)
Quarter: 2016Q3

REPORT INFORMATION
  Report Type: Report from Study
  Country: JP (occurrence: JP)
  Receive Date: 20150501
  Receipt Date: 20160804
  Transmission Date: 20161109
  Serious: Yes (Death, Hospitalization, Other)
  Sender: FDA-Public Use
  Company Number: JP-B.I. PHARMACEUTICALS,INC./RIDGEFIELD-2015-BI-22574NB

PATIENT
  Age: 67 Year
  Sex: Male
  Weight: 52 kg

DRUGS (3)
  1. SALIPARA-CODEINE [Concomitant]
     Active Substance: CODEINE PHOSPHATE\PRUNUS SEROTINA BARK
     Indication: COUGH
     Dosage: 8 ML
     Route: 048
     Dates: start: 20150310
  2. GILOTRIF [Suspect]
     Active Substance: AFATINIB
     Dosage: 30 MG
     Route: 065
     Dates: start: 20150408, end: 20150805
  3. GILOTRIF [Suspect]
     Active Substance: AFATINIB
     Indication: LUNG ADENOCARCINOMA
     Dosage: 40 MG
     Route: 065
     Dates: start: 20150311, end: 20150322

REACTIONS (4)
  - Malignant neoplasm progression [Fatal]
  - Monoplegia [Not Recovered/Not Resolved]
  - Rash [Not Recovered/Not Resolved]
  - Diarrhoea [Recovered/Resolved]

NARRATIVE: CASE EVENT DATE: 20150316
